FAERS Safety Report 16676304 (Version 3)
Quarter: 2020Q3

REPORT INFORMATION
  Report Type: Spontaneous
  Country: US (occurrence: US)
  Receive Date: 20190807
  Receipt Date: 20200825
  Transmission Date: 20201102
  Serious: Yes (Hospitalization, Other)
  Sender: FDA-Public Use
  Company Number: US-GILEAD-2019-0421721

PATIENT
  Age: 46 Year
  Sex: Male
  Weight: 81.63 kg

DRUGS (21)
  1. BACTRIM [Concomitant]
     Active Substance: SULFAMETHOXAZOLE\TRIMETHOPRIM
  2. LEVOTHYROXINE. [Concomitant]
     Active Substance: LEVOTHYROXINE
  3. CRESTOR [Concomitant]
     Active Substance: ROSUVASTATIN CALCIUM
  4. EPIVIR [Concomitant]
     Active Substance: LAMIVUDINE
  5. ASPIRIN [ACETYLSALICYLIC ACID] [Concomitant]
     Active Substance: ASPIRIN
  6. RETROVIR [Concomitant]
     Active Substance: ZIDOVUDINE
  7. LANSOPRAZOLE. [Concomitant]
     Active Substance: LANSOPRAZOLE
  8. COMBIVIR [Concomitant]
     Active Substance: LAMIVUDINE\ZIDOVUDINE
  9. ATRIPLA [Suspect]
     Active Substance: EFAVIRENZ\EMTRICITABINE\TENOFOVIR DISOPROXIL FUMARATE
     Indication: HIV INFECTION
     Dosage: 1 DOSAGE FORM, QD
     Route: 065
     Dates: start: 200804, end: 200912
  10. PREZISTA [Concomitant]
     Active Substance: DARUNAVIR ETHANOLATE
  11. CORTISONE [Concomitant]
     Active Substance: CORTISONE
  12. PREDNISONE. [Concomitant]
     Active Substance: PREDNISONE
  13. RESCRIPTOR [Concomitant]
     Active Substance: DELAVIRDINE MESYLATE
  14. TRIUMEQ [Concomitant]
     Active Substance: ABACAVIR SULFATE\DOLUTEGRAVIR SODIUM\LAMIVUDINE
  15. AMOXICILLIN. [Concomitant]
     Active Substance: AMOXICILLIN
  16. FLEET [GLYCEROL] [Concomitant]
  17. SUSTIVA [Concomitant]
     Active Substance: EFAVIRENZ
  18. VIRACEPT [Concomitant]
     Active Substance: NELFINAVIR MESYLATE
  19. TRUVADA [Suspect]
     Active Substance: EMTRICITABINE\TENOFOVIR DISOPROXIL FUMARATE
     Indication: HIV INFECTION
     Dosage: UNK
     Route: 048
     Dates: start: 200912, end: 201907
  20. NORVIR [Concomitant]
     Active Substance: RITONAVIR
  21. FENTANYL. [Concomitant]
     Active Substance: FENTANYL

REACTIONS (13)
  - Osteonecrosis [Not Recovered/Not Resolved]
  - Pain [Unknown]
  - Osteoporosis [Not Recovered/Not Resolved]
  - Renal failure [Not Recovered/Not Resolved]
  - Bone density decreased [Unknown]
  - Anxiety [Unknown]
  - Emotional distress [Unknown]
  - Loss of personal independence in daily activities [Not Recovered/Not Resolved]
  - Depression [Not Recovered/Not Resolved]
  - Anhedonia [Unknown]
  - Bone loss [Unknown]
  - Economic problem [Unknown]
  - Tooth loss [Unknown]

NARRATIVE: CASE EVENT DATE: 2008
